FAERS Safety Report 24177508 (Version 4)
Quarter: 2024Q4

REPORT INFORMATION
  Report Type: Report from Study
  Country: US (occurrence: US)
  Receive Date: 20240806
  Receipt Date: 20241024
  Transmission Date: 20250115
  Serious: Yes (Death, Hospitalization, Other)
  Sender: DECIPHERA PHARMACEUTICALS
  Company Number: US-DECIPHERA PHARMACEUTICALS LLC-2024US000668

PATIENT
  Age: 76 Year
  Sex: Female

DRUGS (7)
  1. QINLOCK [Suspect]
     Active Substance: RIPRETINIB
     Indication: Gastrointestinal stromal tumour
     Dosage: 150 MILLIGRAM, QD
     Route: 048
     Dates: start: 20240422, end: 20240616
  2. QINLOCK [Suspect]
     Active Substance: RIPRETINIB
     Dosage: 150 MILLIGRAM, BID
     Route: 048
     Dates: start: 20240517
  3. QINLOCK [Suspect]
     Active Substance: RIPRETINIB
     Dosage: 250 MILLIGRAM, (150 MG IN MORNING AND 100 MG IN EVENING)
     Route: 048
  4. QINLOCK [Suspect]
     Active Substance: RIPRETINIB
     Dosage: 200 MILLIGRAM, QD
     Route: 048
     Dates: start: 20240617, end: 20240620
  5. QINLOCK [Suspect]
     Active Substance: RIPRETINIB
     Dosage: 250 MILLIGRAM, QD
     Route: 048
     Dates: start: 20240621, end: 20240624
  6. QINLOCK [Suspect]
     Active Substance: RIPRETINIB
     Dosage: 300 MILLIGRAM, QD
     Route: 048
     Dates: start: 20240625, end: 20240723
  7. QINLOCK [Suspect]
     Active Substance: RIPRETINIB
     Dosage: 250 MILLIGRAM, QD
     Route: 048
     Dates: start: 20240724, end: 2024

REACTIONS (8)
  - Death [Fatal]
  - Hospitalisation [Unknown]
  - Malignant neoplasm progression [Unknown]
  - Hypokalaemia [Unknown]
  - Hypoglycaemia [Unknown]
  - Oedema peripheral [Unknown]
  - Extra dose administered [Unknown]
  - Inappropriate schedule of product administration [Unknown]

NARRATIVE: CASE EVENT DATE: 20240101
